FAERS Safety Report 8863042 (Version 2)
Quarter: 2012Q4

REPORT INFORMATION
  Report Type: 
  Country: DE (occurrence: DE)
  Receive Date: 20121026
  Receipt Date: 20121213
  Transmission Date: 20130627
  Serious: Yes (Hospitalization, Other)
  Sender: FDA-Public Use
  Company Number: DE-AMGEN-DEUSP2012067777

PATIENT
  Age: 59 Year
  Sex: Female
  Weight: 56 kg

DRUGS (1)
  1. PROLIA [Suspect]
     Indication: OSTEOPOROSIS POSTMENOPAUSAL
     Dosage: 60 mg, UNK
     Dates: start: 20120731, end: 20120731

REACTIONS (18)
  - Pneumonia [Unknown]
  - Pleural effusion [Unknown]
  - Gastroenteritis [Unknown]
  - Renal failure [Unknown]
  - General physical health deterioration [Unknown]
  - Nutritional condition abnormal [Unknown]
  - Dry skin [Unknown]
  - Sinus tachycardia [Unknown]
  - Sepsis [Unknown]
  - Hypotension [Recovering/Resolving]
  - Diarrhoea [Unknown]
  - Nausea [Unknown]
  - Vomiting [Unknown]
  - Decreased appetite [Unknown]
  - Breath sounds abnormal [Unknown]
  - Syncope [Unknown]
  - Dyspnoea [Unknown]
  - Confusional state [Unknown]
